FAERS Safety Report 9106302 (Version 1)
Quarter: 2013Q1

REPORT INFORMATION
  Report Type: Spontaneous
  Country: US (occurrence: US)
  Receive Date: 20130220
  Receipt Date: 20130220
  Transmission Date: 20140127
  Serious: No
  Sender: FDA-Public Use
  Company Number: US-PFIZER INC-2013064385

PATIENT
  Age: 47 Year
  Sex: Female
  Weight: 58 kg

DRUGS (2)
  1. EFFEXOR [Suspect]
     Indication: ANXIETY
     Dosage: UNK
     Dates: start: 2003, end: 2003
  2. AMITRIPTYLINE [Concomitant]
     Dosage: UNK

REACTIONS (2)
  - Insomnia [Unknown]
  - Migraine [Unknown]
